FAERS Safety Report 6103730-9 (Version None)
Quarter: 2009Q1

REPORT INFORMATION
  Report Type: 
  Country: None (occurrence: None)
  Receive Date: 20090305
  Receipt Date: 20090225
  Transmission Date: 20090719
  Serious: Yes (Other)
  Sender: FDA-Public Use
  Company Number: PHEH2009US02046

PATIENT
  Sex: Female

DRUGS (2)
  1. FEMARA [Suspect]
     Indication: BREAST CANCER
     Dosage: UNK
     Route: 048
     Dates: start: 20090112
  2. FEMARA [Suspect]
     Dosage: UNK
     Route: 048
     Dates: start: 20090216

REACTIONS (3)
  - ALOPECIA [None]
  - MYALGIA [None]
  - TUMOUR EXCISION [None]
